FAERS Safety Report 10474836 (Version 4)
Quarter: 2015Q2

REPORT INFORMATION
  Report Type: Report from Study
  Country: CA (occurrence: CA)
  Receive Date: 20140925
  Receipt Date: 20150526
  Transmission Date: 20150821
  Serious: Yes (Other)
  Sender: FDA-Public Use
  Company Number: CA-ROCHE-1466184

PATIENT
  Age: 61 Year
  Sex: Female

DRUGS (8)
  1. APO-HYDRO [Concomitant]
     Active Substance: HYDROCHLOROTHIAZIDE
  2. ACTEMRA [Suspect]
     Active Substance: TOCILIZUMAB
     Route: 042
     Dates: start: 20150514
  3. METHOTREXATE [Concomitant]
     Active Substance: METHOTREXATE
  4. ATENOLOL. [Concomitant]
     Active Substance: ATENOLOL
  5. ACTEMRA [Suspect]
     Active Substance: TOCILIZUMAB
     Indication: RHEUMATOID ARTHRITIS
     Route: 042
     Dates: start: 20121218
  6. FOLIC ACID. [Concomitant]
     Active Substance: FOLIC ACID
  7. NOVO-LEXIN [Suspect]
     Active Substance: CEPHALEXIN
     Indication: INFECTION
     Dosage: FOR 10 DAYS
     Route: 065
     Dates: start: 20140826, end: 20140912
  8. ACUPRIL [Concomitant]

REACTIONS (6)
  - Gout [Not Recovered/Not Resolved]
  - Dizziness [Unknown]
  - Localised infection [Not Recovered/Not Resolved]
  - Rheumatoid nodule [Unknown]
  - Liver function test abnormal [Unknown]
  - Feeling drunk [Unknown]

NARRATIVE: CASE EVENT DATE: 201409
